FAERS Safety Report 4970462-X (Version None)
Quarter: 2006Q1

REPORT INFORMATION
  Report Type: 
  Country: None (occurrence: None)
  Receive Date: 20060127
  Receipt Date: 20051019
  Transmission Date: 20060701
  Serious: No
  Sender: FDA-Public Use
  Company Number: 012004

PATIENT
  Age: 83 Year
  Sex: Female

DRUGS (13)
  1. PRIALT [Suspect]
     Indication: PAIN
     Dosage: 1.13 UG,  ONCE/HOUR, INTRATHECAL :  0.05 UG, ONCE/HOUR, INTRATHECAL
     Route: 037
     Dates: start: 20050906, end: 20051003
  2. PRIALT [Suspect]
     Indication: PAIN
     Dosage: 1.13 UG,  ONCE/HOUR, INTRATHECAL :  0.05 UG, ONCE/HOUR, INTRATHECAL
     Route: 037
     Dates: start: 20051003, end: 20051011
  3. DETROL [Concomitant]
  4. TENORMIN [Concomitant]
  5. THYROID TAB [Concomitant]
  6. VASOTEC [Concomitant]
  7. CARDURA [Concomitant]
  8. TRIAVIL (AMITRIPTYLINE HYDROCHLORIDE, PERPHENAZINE) [Concomitant]
  9. NORCO [Concomitant]
  10. VISTARIL (HYDROXYZINE HYDROCHLORIDE) [Concomitant]
  11. LASIX [Concomitant]
  12. POTASSIUM [Concomitant]
  13. COUMADIN [Concomitant]

REACTIONS (1)
  - PAIN [None]
